FAERS Safety Report 21927950 (Version 2)
Quarter: 2023Q1

REPORT INFORMATION
  Report Type: Report from Study
  Country: CN (occurrence: None)
  Receive Date: 20230130
  Receipt Date: 20230216
  Transmission Date: 20230418
  Serious: Yes (Death, Hospitalization)
  Sender: FDA-Public Use
  Company Number: CN-ROCHE-3273545

PATIENT
  Age: 69 Year
  Sex: Male
  Weight: 75 kg

DRUGS (17)
  1. RITUXIMAB [Suspect]
     Active Substance: RITUXIMAB
     Indication: Chronic lymphocytic leukaemia
     Route: 065
     Dates: start: 20220815
  2. BENDAMUSTINE [Suspect]
     Active Substance: BENDAMUSTINE
     Indication: Chronic lymphocytic leukaemia
     Route: 065
     Dates: start: 20220815
  3. AMBROXOL [Concomitant]
     Active Substance: AMBROXOL
     Indication: COVID-19
     Dates: start: 20230103
  4. AMBROXOL [Concomitant]
     Active Substance: AMBROXOL
     Dates: start: 20230107
  5. CHYMOTRYPSIN [Concomitant]
     Active Substance: CHYMOTRYPSIN
     Indication: COVID-19
     Route: 042
     Dates: start: 20230103
  6. OXYGEN [Concomitant]
     Active Substance: OXYGEN
     Indication: Asphyxia
     Dates: start: 20230103
  7. DEXAMETHASONE [Concomitant]
     Active Substance: DEXAMETHASONE
     Indication: COVID-19
     Route: 042
     Dates: start: 20230104
  8. DEXAMETHASONE [Concomitant]
     Active Substance: DEXAMETHASONE
     Dates: start: 20230107
  9. BETAHISTINE MESILATE [Concomitant]
     Active Substance: BETAHISTINE MESILATE
     Route: 048
     Dates: start: 20230106
  10. MOXIFLOXACIN [Concomitant]
     Active Substance: MOXIFLOXACIN
     Indication: COVID-19
     Dates: start: 20230107
  11. BUFFALO HORN [Concomitant]
     Indication: COVID-19
     Dosage: ONE BAG
  12. CHOLIC ACID [Concomitant]
     Active Substance: CHOLIC ACID
     Indication: COVID-19
     Dosage: ONE BAG
  13. CONCHA MARGARITIFERA [Concomitant]
     Indication: COVID-19
     Dosage: ONE BAG
  14. GARDENIA [Concomitant]
     Indication: COVID-19
     Dosage: ONE BAG
  15. HYODEOXYCHOLIC ACID [Concomitant]
     Active Substance: HYODEOXYCHOLIC ACID
     Indication: COVID-19
     Dosage: ONE BAG
  16. ISATIS TINCTORIA ROOT [Concomitant]
     Active Substance: ISATIS TINCTORIA ROOT
     Indication: COVID-19
     Dosage: ONE BAG
  17. LONICERA JAPONICA FLOWER [Concomitant]
     Active Substance: LONICERA JAPONICA FLOWER
     Indication: COVID-19
     Dosage: ONE BAG

REACTIONS (1)
  - COVID-19 pneumonia [Fatal]

NARRATIVE: CASE EVENT DATE: 20230112
